FAERS Safety Report 6692102-4 (Version None)
Quarter: 2010Q2

REPORT INFORMATION
  Report Type: 
  Country: None (occurrence: None)
  Receive Date: 20100422
  Receipt Date: 20091002
  Transmission Date: 20101027
  Serious: No
  Sender: FDA-Public Use
  Company Number: US-ASTRAZENECA-2009SE17754

PATIENT
  Age: 82 Year
  Sex: Female
  Weight: 59.4 kg

DRUGS (5)
  1. TOPROL-XL [Suspect]
     Route: 048
     Dates: start: 20090401
  2. PLAVIX [Concomitant]
  3. LISINOPRIL [Concomitant]
  4. SIMVASTATIN [Concomitant]
  5. ASPIRIN [Concomitant]

REACTIONS (5)
  - COUGH [None]
  - LACRIMATION INCREASED [None]
  - LARYNX IRRITATION [None]
  - PERIPHERAL COLDNESS [None]
  - SALIVARY HYPERSECRETION [None]
